FAERS Safety Report 24716875 (Version 2)
Quarter: 2024Q4

REPORT INFORMATION
  Report Type: Spontaneous
  Country: CN (occurrence: CN)
  Receive Date: 20241210
  Receipt Date: 20241218
  Transmission Date: 20250115
  Serious: Yes (Hospitalization, Other)
  Sender: PFIZER
  Company Number: CN-PFIZER INC-PV202400157993

PATIENT
  Age: 46 Year
  Sex: Female
  Weight: 58 kg

DRUGS (6)
  1. PACLITAXEL [Suspect]
     Active Substance: PACLITAXEL
     Indication: Squamous cell carcinoma of the cervix
     Dosage: 240 MG, 1X/DAY
     Dates: start: 20190315, end: 20190315
  2. PACLITAXEL [Suspect]
     Active Substance: PACLITAXEL
     Dosage: 240 MG, 1X/DAY
     Dates: start: 20190411, end: 20190411
  3. PACLITAXEL [Suspect]
     Active Substance: PACLITAXEL
     Dosage: 240 MG, 1X/DAY
     Route: 041
     Dates: start: 20190704, end: 20190704
  4. CISPLATIN [Suspect]
     Active Substance: CISPLATIN
     Indication: Squamous cell carcinoma of the cervix
     Dosage: 600 MG, 1X/DAY
     Dates: start: 20190315, end: 20190315
  5. CISPLATIN [Suspect]
     Active Substance: CISPLATIN
     Dosage: 600 MG, 1X/DAY
     Dates: start: 20190411, end: 20190411
  6. CISPLATIN [Suspect]
     Active Substance: CISPLATIN
     Dosage: 40 MG, 1X/DAY
     Route: 041
     Dates: start: 20190704, end: 20190706

REACTIONS (2)
  - Transaminases increased [Recovering/Resolving]
  - Off label use [Unknown]

NARRATIVE: CASE EVENT DATE: 20190315
